FAERS Safety Report 8604990 (Version 2)
Quarter: 2015Q1

REPORT INFORMATION
  Report Type: Report from Study
  Country: US (occurrence: US)
  Receive Date: 20120608
  Receipt Date: 20150313
  Transmission Date: 20150721
  Serious: Yes (Death)
  Sender: FDA-Public Use
  Company Number: US-ROCHE-1076143

PATIENT
  Sex: Female

DRUGS (2)
  1. XELODA [Suspect]
     Active Substance: CAPECITABINE
     Indication: BREAST CANCER
     Dosage: 4 TABS IN MORNING AND 3 TABS IN EVENING
     Route: 048
     Dates: start: 20111027
  2. LAPATINIB [Concomitant]
     Active Substance: LAPATINIB

REACTIONS (1)
  - Death [Fatal]
